FAERS Safety Report 16999128 (Version 1)
Quarter: 2019Q4

REPORT INFORMATION
  Report Type: Spontaneous
  Country: US (occurrence: US)
  Receive Date: 20191105
  Receipt Date: 20191105
  Transmission Date: 20200122
  Serious: Yes (Other)
  Sender: FDA-Public Use
  Company Number: None

PATIENT
  Age: 33 Year
  Sex: Female
  Weight: 54 kg

DRUGS (3)
  1. MIDODRINE HCL [Suspect]
     Active Substance: MIDODRINE HYDROCHLORIDE
     Indication: ORTHOSTATIC HYPOTENSION
     Route: 048
  2. CROMOLYN SODIUM. [Concomitant]
     Active Substance: CROMOLYN SODIUM
  3. SALT SUPPLEMENT [Concomitant]

REACTIONS (6)
  - Tremor [None]
  - Chills [None]
  - Product substitution issue [None]
  - Dizziness [None]
  - Feeling abnormal [None]
  - Heart rate increased [None]

NARRATIVE: CASE EVENT DATE: 20191103
